FAERS Safety Report 24342833 (Version 1)
Quarter: 2024Q3

REPORT INFORMATION
  Report Type: Spontaneous
  Country: US (occurrence: None)
  Receive Date: 20240919
  Receipt Date: 20240919
  Transmission Date: 20241016
  Serious: Yes (Hospitalization)
  Sender: Public
  Company Number: None

PATIENT
  Age: 73 Year
  Sex: Female

DRUGS (10)
  1. ADEMPAS [Suspect]
     Active Substance: RIOCIGUAT
     Indication: Pulmonary hypertension
     Dosage: FREQUENCY : TWICE A DAY;?
     Route: 048
     Dates: start: 20220928, end: 20240826
  2. ATORVASTATIN [Concomitant]
  3. ENOXAPARIN [Concomitant]
  4. LEVOTHYROXINE [Concomitant]
  5. FUROSEMIDE [Concomitant]
  6. AMLODIPINE [Concomitant]
  7. POTASSIUM CHLORIDE [Concomitant]
  8. PRADAXA [Concomitant]
  9. ANALPRAM HC [Concomitant]
  10. OPSUMIT [Concomitant]

REACTIONS (3)
  - Therapy cessation [None]
  - Endarterectomy [None]
  - Pulmonary endarterectomy [None]

NARRATIVE: CASE EVENT DATE: 20240824
